FAERS Safety Report 5127419-8 (Version None)
Quarter: 2006Q4

REPORT INFORMATION
  Report Type: 
  Country: None (occurrence: None)
  Receive Date: 20061013
  Receipt Date: 20061013
  Transmission Date: 20070319
  Serious: No
  Sender: FDA-Public Use
  Company Number: None

PATIENT
  Sex: Female
  Weight: 93.8946 kg

DRUGS (3)
  1. OXYCONTIN [Suspect]
     Indication: TRAUMATIC ARTHRITIS
     Dosage: 40MG  ONE Q12HRS.  PO
     Route: 048
     Dates: start: 20030603
  2. RANITIDINE [Concomitant]
  3. LOVASTATIN [Concomitant]

REACTIONS (2)
  - NAUSEA [None]
  - PHARMACEUTICAL PRODUCT COMPLAINT [None]
